FAERS Safety Report 7430520-7 (Version None)
Quarter: 2011Q2

REPORT INFORMATION
  Report Type: 
  Country: None (occurrence: None)
  Receive Date: 20110421
  Receipt Date: 20101207
  Transmission Date: 20111010
  Serious: No
  Sender: FDA-Public Use
  Company Number: US-ASTRAZENECA-2010SE58360

PATIENT
  Sex: Female

DRUGS (1)
  1. TOPROL-XL [Suspect]
     Route: 048

REACTIONS (10)
  - BLOOD CHOLESTEROL INCREASED [None]
  - NAUSEA [None]
  - MUSCULOSKELETAL CHEST PAIN [None]
  - DIZZINESS [None]
  - FLATULENCE [None]
  - FATIGUE [None]
  - ABDOMINAL PAIN UPPER [None]
  - INSOMNIA [None]
  - HALLUCINATION [None]
  - ABNORMAL DREAMS [None]
